FAERS Safety Report 4743642-6 (Version None)
Quarter: 2005Q3

REPORT INFORMATION
  Report Type: 
  Country: None (occurrence: None)
  Receive Date: 20050812
  Receipt Date: 20050623
  Transmission Date: 20060218
  Serious: Yes (Hospitalization)
  Sender: FDA-Public Use
  Company Number: JP-BRISTOL-MYERS SQUIBB COMPANY-13038021

PATIENT
  Age: 64 Year
  Sex: Male

DRUGS (9)
  1. IFOSFAMIDE [Suspect]
     Indication: PROSTATE CANCER
     Dates: start: 20050607, end: 20050609
  2. VINCRISTINE SULFATE [Suspect]
     Indication: PROSTATE CANCER
     Route: 030
     Dates: start: 20050606, end: 20050609
  3. PEPLOMYCIN SULFATE [Suspect]
     Indication: PROSTATE CANCER
     Route: 030
     Dates: start: 20050606, end: 20050610
  4. NIFEDIPINE [Concomitant]
     Dates: start: 20001101, end: 20050610
  5. CARVEDILOL [Concomitant]
     Dates: start: 20001101, end: 20050610
  6. PENTAZOCINE HCL [Concomitant]
     Dates: start: 20050117, end: 20050610
  7. DICLOFENAC SODIUM [Concomitant]
     Dates: start: 20050415, end: 20050610
  8. LANSOPRAZOLE [Concomitant]
     Dates: start: 20050511, end: 20050610
  9. BLEOMYCIN SULFATE [Concomitant]
     Dates: start: 20050606, end: 20050610

REACTIONS (2)
  - ENCEPHALOPATHY [None]
  - RENAL IMPAIRMENT [None]
